FAERS Safety Report 25529397 (Version 3)
Quarter: 2025Q3

REPORT INFORMATION
  Report Type: Spontaneous
  Country: US (occurrence: US)
  Receive Date: 20250708
  Receipt Date: 20250912
  Transmission Date: 20251020
  Serious: Yes (Death)
  Sender: PFIZER
  Company Number: US-PFIZER INC-PV202400138677

PATIENT
  Age: 40 Year
  Sex: Female
  Weight: 66.9 kg

DRUGS (4)
  1. TIVDAK [Suspect]
     Active Substance: TISOTUMAB VEDOTIN-TFTV
     Indication: Cervix carcinoma
     Dosage: 138.8 MG, EVERY 3 WEEKS
     Dates: start: 202404, end: 202405
  2. TIVDAK [Suspect]
     Active Substance: TISOTUMAB VEDOTIN-TFTV
     Dates: start: 202411
  3. TIVDAK [Suspect]
     Active Substance: TISOTUMAB VEDOTIN-TFTV
     Dosage: 2 MG/KG, EVERY 3 WEEKS
     Route: 042
  4. TIVDAK [Suspect]
     Active Substance: TISOTUMAB VEDOTIN-TFTV
     Dosage: 136.4 MG, EVERY 3 WEEKS
     Route: 042
     Dates: end: 20250326

REACTIONS (3)
  - Cervix carcinoma [Fatal]
  - Malignant neoplasm progression [Fatal]
  - Inappropriate schedule of product administration [Unknown]
